FAERS Safety Report 5286636-7 (Version None)
Quarter: 2007Q2

REPORT INFORMATION
  Report Type: 
  Country: None (occurrence: None)
  Receive Date: 20070404
  Receipt Date: 20070330
  Transmission Date: 20071010
  Serious: Yes (Hospitalization)
  Sender: FDA-Public Use
  Company Number: JP-JPN-A200701460

PATIENT
  Age: 14 Year
  Sex: Male

DRUGS (6)
  1. RELENZA [Suspect]
     Indication: INFLUENZA
     Dosage: 10MG TWICE PER DAY
     Route: 055
     Dates: start: 20070322, end: 20070323
  2. ASVERIN [Concomitant]
     Route: 048
  3. CALONAL [Concomitant]
     Route: 065
  4. CLARITHROMYCIN [Concomitant]
     Route: 048
  5. DEQUALINIUM CHLORIDE [Concomitant]
  6. CHINESE MEDICINE [Concomitant]
     Route: 048

REACTIONS (2)
  - DEPRESSED LEVEL OF CONSCIOUSNESS [None]
  - HALLUCINATION [None]
